FAERS Safety Report 5424949-6 (Version None)
Quarter: 2007Q3

REPORT INFORMATION
  Report Type: 
  Country: None (occurrence: None)
  Receive Date: 20070824
  Receipt Date: 20070820
  Transmission Date: 20080115
  Serious: Yes (Other)
  Sender: FDA-Public Use
  Company Number: A0673060A

PATIENT
  Age: 53 Year
  Sex: Male

DRUGS (3)
  1. FLONASE [Suspect]
     Dosage: 2PUFF PER DAY
     Route: 045
  2. ALLEGRA [Concomitant]
  3. OTHER MEDICATIONS [Concomitant]

REACTIONS (1)
  - BREAST CANCER [None]
